FAERS Safety Report 12113427 (Version 4)
Quarter: 2016Q2

REPORT INFORMATION
  Report Type: Spontaneous
  Country: SE (occurrence: SE)
  Receive Date: 20160225
  Receipt Date: 20160405
  Transmission Date: 20160815
  Serious: Yes (Other)
  Sender: FDA-Public Use
  Company Number: SE-009507513-1602SWE009278

PATIENT
  Age: 38 Year
  Sex: Female

DRUGS (2)
  1. NEXPLANON [Suspect]
     Active Substance: ETONOGESTREL
     Dosage: UNK
     Route: 059
     Dates: start: 2016
  2. NEXPLANON [Suspect]
     Active Substance: ETONOGESTREL
     Indication: CONTRACEPTION
     Dosage: 68 MG, UNK
     Route: 059
     Dates: start: 20131017

REACTIONS (8)
  - Menstruation delayed [Unknown]
  - Nausea [Unknown]
  - Unintended pregnancy [Recovered/Resolved]
  - Pregnancy with implant contraceptive [Recovered/Resolved]
  - Stress [Not Recovered/Not Resolved]
  - Breast pain [Unknown]
  - Fatigue [Unknown]
  - Abortion induced [Recovered/Resolved]

NARRATIVE: CASE EVENT DATE: 20151207
